FAERS Safety Report 10504058 (Version 2)
Quarter: 2014Q4

REPORT INFORMATION
  Report Type: Spontaneous
  Country: US (occurrence: US)
  Receive Date: 20141008
  Receipt Date: 20141008
  Transmission Date: 20150528
  Serious: Yes (Other)
  Sender: FDA-Public Use
  Company Number: US-BEH-2013038080

PATIENT
  Sex: Female
  Weight: 73 kg

DRUGS (1)
  1. PRIVIGEN [Suspect]
     Active Substance: HUMAN IMMUNOGLOBULIN G
     Indication: LICHEN MYXOEDEMATOSUS
     Route: 042
     Dates: start: 20130819, end: 20130823

REACTIONS (1)
  - Haemolytic anaemia [Unknown]
